FAERS Safety Report 21355692 (Version 1)
Quarter: 2022Q3

REPORT INFORMATION
  Report Type: Spontaneous
  Country: US (occurrence: None)
  Receive Date: 20220920
  Receipt Date: 20220920
  Transmission Date: 20221027
  Serious: Yes (Hospitalization)
  Sender: FDA-Public Use
  Company Number: None

PATIENT
  Sex: Male
  Weight: 67.6 kg

DRUGS (3)
  1. CISPLATIN [Suspect]
     Active Substance: CISPLATIN
     Dates: end: 20220909
  2. FILGRASTIM [Suspect]
     Active Substance: FILGRASTIM
     Dates: end: 20220913
  3. TAXOL [Suspect]
     Active Substance: PACLITAXEL
     Dates: end: 20220905

REACTIONS (2)
  - Febrile neutropenia [None]
  - Hospitalisation [None]

NARRATIVE: CASE EVENT DATE: 20220913
